FAERS Safety Report 8008882-1 (Version None)
Quarter: 2011Q4

REPORT INFORMATION
  Report Type: 
  Country: None (occurrence: None)
  Receive Date: 20111227
  Receipt Date: 20111212
  Transmission Date: 20120403
  Serious: Yes (Hospitalization)
  Sender: FDA-Public Use
  Company Number: CA-JNJFOC-20110700728

PATIENT
  Sex: Female
  Weight: 106 kg

DRUGS (2)
  1. IMURAN [Concomitant]
     Route: 048
  2. REMICADE [Suspect]
     Indication: CROHN'S DISEASE
     Dosage: 8TH INFUSION 12-DEC-2011
     Route: 042
     Dates: start: 20110202

REACTIONS (3)
  - MATERNAL EXPOSURE DURING PREGNANCY [None]
  - PREMATURE RUPTURE OF MEMBRANES [None]
  - URINARY TRACT INFECTION [None]
